FAERS Safety Report 7010810-2 (Version None)
Quarter: 2010Q3

REPORT INFORMATION
  Report Type: 
  Country: None (occurrence: None)
  Receive Date: 20100923
  Receipt Date: 20100923
  Transmission Date: 20110219
  Serious: Yes (Other)
  Sender: FDA-Public Use
  Company Number: None

PATIENT
  Age: 56 Year
  Sex: Female
  Weight: 90.0844 kg

DRUGS (1)
  1. ALENDRONATE 70MG WATSON, AND ARROW PHARM [Suspect]
     Indication: OSTEOPOROSIS
     Dosage: 70MG WEEKLY PO
     Route: 048
     Dates: start: 20100823, end: 20100823

REACTIONS (3)
  - DRUG ERUPTION [None]
  - PRODUCT SUBSTITUTION ISSUE [None]
  - VIRAL RASH [None]
